FAERS Safety Report 22586958 (Version 1)
Quarter: 2023Q2

REPORT INFORMATION
  Report Type: Spontaneous
  Country: IL (occurrence: IL)
  Receive Date: 20230612
  Receipt Date: 20230612
  Transmission Date: 20230722
  Serious: Yes (Other)
  Sender: FDA-Public Use
  Company Number: IL-JNJFOC-20230602269

PATIENT

DRUGS (1)
  1. ERDAFITINIB [Suspect]
     Active Substance: ERDAFITINIB
     Indication: Transitional cell carcinoma
     Route: 065

REACTIONS (18)
  - Sepsis [Unknown]
  - Acute kidney injury [Unknown]
  - Fatigue [Unknown]
  - Mucosal inflammation [Unknown]
  - Hyperphosphataemia [Unknown]
  - Diarrhoea [Unknown]
  - Onycholysis [Unknown]
  - Nail disorder [Unknown]
  - Drug ineffective [Unknown]
  - Palmar-plantar erythrodysaesthesia syndrome [Unknown]
  - Dry eye [Unknown]
  - Visual impairment [Unknown]
  - Dry mouth [Unknown]
  - Hypercalcaemia [Unknown]
  - Myalgia [Unknown]
  - Dyspnoea [Unknown]
  - Decreased appetite [Unknown]
  - Oedema peripheral [Unknown]
